FAERS Safety Report 13303579 (Version 4)
Quarter: 2018Q4

REPORT INFORMATION
  Report Type: Report from Study
  Country: US (occurrence: US)
  Receive Date: 20170307
  Receipt Date: 20181023
  Transmission Date: 20190204
  Serious: Yes (Death, Hospitalization)
  Sender: FDA-Public Use
  Company Number: US-ACTELION-A-NJ2017-150579

PATIENT
  Age: 57 Year
  Sex: Female

DRUGS (3)
  1. OPSUMIT [Suspect]
     Active Substance: MACITENTAN
     Indication: PULMONARY ARTERIAL HYPERTENSION
     Dosage: UNK
     Route: 048
     Dates: start: 20161108
  2. SILDENAFIL. [Concomitant]
     Active Substance: SILDENAFIL
     Dosage: UNK
  3. OPSUMIT [Suspect]
     Active Substance: MACITENTAN
     Dosage: UNK
     Route: 048
     Dates: end: 20170705

REACTIONS (15)
  - Brain natriuretic peptide increased [Unknown]
  - Blood bilirubin increased [Unknown]
  - Pulmonary arterial hypertension [Unknown]
  - Condition aggravated [Unknown]
  - Nausea [Recovered/Resolved]
  - Vomiting [Recovered/Resolved]
  - Jugular vein distension [Unknown]
  - Blood creatinine increased [Unknown]
  - Abdominal pain upper [Recovered/Resolved]
  - Death [Fatal]
  - Cardiac failure [Recovered/Resolved]
  - Chest pain [Recovered/Resolved]
  - Muscle spasms [Recovered/Resolved]
  - Dyspnoea [Recovered/Resolved]
  - Right ventricular dilatation [Unknown]

NARRATIVE: CASE EVENT DATE: 20161129
